FAERS Safety Report 11501601 (Version 3)
Quarter: 2016Q1

REPORT INFORMATION
  Report Type: Spontaneous
  Country: US (occurrence: US)
  Receive Date: 20150914
  Receipt Date: 20160106
  Transmission Date: 20160525
  Serious: Yes (Other)
  Sender: FDA-Public Use
  Company Number: US-GLAXOSMITHKLINE-US2015GSK130002

PATIENT
  Sex: Female

DRUGS (1)
  1. VENTOLIN HFA [Suspect]
     Active Substance: ALBUTEROL SULFATE
     Indication: DYSPNOEA
     Dosage: UNK

REACTIONS (8)
  - Memory impairment [Unknown]
  - Pneumonia [Unknown]
  - Pericardial effusion [Unknown]
  - Joint swelling [Unknown]
  - Ill-defined disorder [Unknown]
  - Cardiac failure congestive [Unknown]
  - Malaise [Unknown]
  - Stress [Unknown]
